FAERS Safety Report 7237607-2 (Version None)
Quarter: 2011Q1

REPORT INFORMATION
  Report Type: 
  Country: None (occurrence: None)
  Receive Date: 20110121
  Receipt Date: 20110117
  Transmission Date: 20110831
  Serious: Yes (Hospitalization, Other)
  Sender: FDA-Public Use
  Company Number: US-ROCHE-597915

PATIENT

DRUGS (3)
  1. ERLOTINIB [Suspect]
     Route: 065
  2. GEMCITABINE [Suspect]
     Route: 065
  3. CAPECITABINE [Suspect]
     Route: 065

REACTIONS (16)
  - DIARRHOEA [None]
  - ABDOMINAL PAIN [None]
  - DECREASED APPETITE [None]
  - RASH [None]
  - INTESTINAL ISCHAEMIA [None]
  - BILE DUCT STENOSIS [None]
  - WOUND DEHISCENCE [None]
  - NEUTROPENIA [None]
  - ASPARTATE AMINOTRANSFERASE INCREASED [None]
  - DEHYDRATION [None]
  - GASTROENTERITIS RADIATION [None]
  - ALANINE AMINOTRANSFERASE INCREASED [None]
  - VOMITING [None]
  - LYMPHOPENIA [None]
  - PERIPHERAL SENSORY NEUROPATHY [None]
  - DRY SKIN [None]
